FAERS Safety Report 5926128-2 (Version None)
Quarter: 2008Q4

REPORT INFORMATION
  Report Type: 
  Country: None (occurrence: None)
  Receive Date: 20081016
  Receipt Date: 20080929
  Transmission Date: 20090506
  Serious: Yes (Hospitalization)
  Sender: FDA-Public Use
  Company Number: 000#5#2008-00187

PATIENT
  Age: 78 Year
  Sex: Male

DRUGS (5)
  1. ROTIGOTINE (DOSE UNKNOWN), PATCH (SILICONE) (ROTIGOTINE) [Suspect]
     Indication: PARKINSON'S DISEASE
     Dosage: TRANSDERMAL
     Route: 062
  2. MAGNESIUM LACTATE (MAGNESIUM LACTATE) [Concomitant]
  3. TRAZODONE HCL [Concomitant]
  4. ACETYLSALICYLIC ACID SRT [Concomitant]
  5. BUFLOMEDIL HYDROCHLORIDE (BUFLOMEDIL HYDROCHLORIDE) [Concomitant]

REACTIONS (1)
  - AORTIC BYPASS [None]
